FAERS Safety Report 8922016 (Version 1)
Quarter: 2012Q4

REPORT INFORMATION
  Report Type: Spontaneous
  Country: US (occurrence: None)
  Receive Date: 20121120
  Receipt Date: 20121120
  Transmission Date: 20130627
  Serious: Yes (Hospitalization)
  Sender: FDA-Public Use
  Company Number: None

PATIENT
  Sex: Female

DRUGS (2)
  1. FORTEO [Suspect]
     Indication: OSTEOPOROSIS
     Dosage: 20 mcg Daily sq
     Route: 058
     Dates: start: 20120829, end: 20121115
  2. GEMFIBROZIL [Suspect]
     Indication: DYSLIPIDEMIA
     Dosage: po
     Route: 048

REACTIONS (3)
  - Sensory loss [None]
  - Asthenia [None]
  - Nerve compression [None]
